FAERS Safety Report 5136860-9 (Version None)
Quarter: 2006Q4

REPORT INFORMATION
  Report Type: 
  Country: None (occurrence: None)
  Receive Date: 20061023
  Receipt Date: 20061011
  Transmission Date: 20070319
  Serious: Yes (Hospitalization, Other)
  Sender: FDA-Public Use
  Company Number: 2006109988

PATIENT
  Age: 25 Year
  Sex: Male

DRUGS (3)
  1. ZOLOFT [Suspect]
     Dosage: 100 MG (1 IN 1 D), ORAL
     Route: 048
  2. TETRAMIDE (MIANSERIN HYDROCHLORIDE) [Concomitant]
  3. SEROQUEL [Concomitant]

REACTIONS (1)
  - CONVULSION [None]
